FAERS Safety Report 5424184-1 (Version None)
Quarter: 2007Q3

REPORT INFORMATION
  Report Type: 
  Country: None (occurrence: None)
  Receive Date: 20070823
  Receipt Date: 20070813
  Transmission Date: 20080115
  Serious: Yes (Other)
  Sender: FDA-Public Use
  Company Number: GB-PFIZER INC-2007064822

PATIENT
  Sex: Female
  Weight: 50.8 kg

DRUGS (6)
  1. SALAZOPYRIN [Suspect]
  2. ACTONEL [Concomitant]
  3. ACECLOFENAC [Concomitant]
  4. BENDROFLUMETHIAZIDE [Concomitant]
  5. CALCICHEW-D3 [Concomitant]
  6. PREDNISOLONE [Concomitant]

REACTIONS (1)
  - WEIGHT DECREASED [None]
